FAERS Safety Report 19708287 (Version 8)
Quarter: 2022Q2

REPORT INFORMATION
  Report Type: Report from Study
  Country: JP (occurrence: JP)
  Receive Date: 20210817
  Receipt Date: 20220420
  Transmission Date: 20220720
  Serious: Yes (Hospitalization, Disabling, Other)
  Sender: FDA-Public Use
  Company Number: JP-AEGERION PHARMACEUTICALS-AEGR-2018-00077

PATIENT
  Age: 50 Year
  Sex: Male
  Weight: 55 kg

DRUGS (29)
  1. JUXTAPID [Suspect]
     Active Substance: LOMITAPIDE MESYLATE
     Indication: Type IIa hyperlipidaemia
     Dosage: 5 MG, ON ALTERNATE DAYS, THE PATIENT TOOK JUXTAPID 2 HOURS AFTER DINNER
     Route: 048
     Dates: start: 20171206
  2. JUXTAPID [Suspect]
     Active Substance: LOMITAPIDE MESYLATE
     Dosage: 5 MG, QD, THE PATIENT TOOK JUXTAPID 2 HOURS AFTER DINNER
     Route: 048
     Dates: start: 20180307
  3. JUXTAPID [Suspect]
     Active Substance: LOMITAPIDE MESYLATE
     Dosage: 10 MG, QD
     Route: 048
     Dates: start: 20201224, end: 20210209
  4. JUXTAPID [Suspect]
     Active Substance: LOMITAPIDE MESYLATE
     Dosage: 10 MG, QD
     Route: 048
     Dates: end: 20210622
  5. JUXTAPID [Suspect]
     Active Substance: LOMITAPIDE MESYLATE
     Dosage: 10 MG, QD
     Route: 048
     Dates: start: 20210702, end: 20210728
  6. JUXTAPID [Suspect]
     Active Substance: LOMITAPIDE MESYLATE
     Dosage: 5 MILLIGRAM
     Route: 048
     Dates: start: 20171206, end: 20210623
  7. WARFARIN [Suspect]
     Active Substance: WARFARIN
     Indication: Cardiac valve disease
     Dosage: UNK
     Route: 048
     Dates: start: 20210211, end: 20210421
  8. WARFARIN [Suspect]
     Active Substance: WARFARIN
     Dosage: 2.25 MILLIGRAM, QD THE PATIENT TOOK WARFARIN ONCE A DAY AFTER DINNER
     Route: 048
     Dates: start: 20210422, end: 20210426
  9. WARFARIN [Suspect]
     Active Substance: WARFARIN
     Dosage: 2 MILLIGRAM, QD THE PATIENT TOOK WARFARIN ONCE A DAY AFTER DINNER
     Route: 048
     Dates: start: 20210430, end: 20210622
  10. WARFARIN [Suspect]
     Active Substance: WARFARIN
     Dosage: 2 MILLIGRAM, QD THE PATIENT TOOK WARFARIN ONCE A DAY AFTER DINNER
     Route: 048
     Dates: start: 20210628, end: 20210704
  11. WARFARIN [Suspect]
     Active Substance: WARFARIN
     Dosage: 2.5 MILLIGRAM, QD THE PATIENT TOOK WARFARIN ONCE A DAY AFTER DINNER
     Route: 048
     Dates: start: 20210705, end: 20210801
  12. WARFARIN [Suspect]
     Active Substance: WARFARIN
     Dosage: 3 MILLIGRAM, QD THE PATIENT TOOK WARFARIN ONCE A DAY AFTER DINNER
     Route: 048
     Dates: start: 20210802
  13. ASPIRIN [Concomitant]
     Active Substance: ASPIRIN
     Indication: Coronary artery disease
     Dosage: 100 MG, QD
     Route: 048
  14. ASPIRIN [Concomitant]
     Active Substance: ASPIRIN
     Indication: Peripheral arterial occlusive disease
  15. CLOPIDOGREL [Concomitant]
     Active Substance: CLOPIDOGREL BISULFATE
     Indication: Coronary artery disease
     Dosage: 75 MG, QD
     Route: 048
     Dates: start: 20131114
  16. CLOPIDOGREL [Concomitant]
     Active Substance: CLOPIDOGREL BISULFATE
     Indication: Peripheral arterial occlusive disease
  17. ATENOLOL [Concomitant]
     Active Substance: ATENOLOL
     Indication: Angina pectoris
     Dosage: 50 MG, BID
     Route: 048
  18. ATORVASTATIN [Concomitant]
     Active Substance: ATORVASTATIN
     Indication: Hypercholesterolaemia
     Dosage: 65 MG, BID
     Route: 048
     Dates: start: 20120516
  19. EZETIMIBE [Concomitant]
     Active Substance: EZETIMIBE
     Indication: Hypercholesterolaemia
     Dosage: 10 MG, QD
     Route: 048
     Dates: start: 20101013
  20. ICOSAPENT ETHYL [Concomitant]
     Active Substance: ICOSAPENT ETHYL
     Indication: Hypercholesterolaemia
     Dosage: 1800 MG, BID
     Route: 048
     Dates: start: 20100519
  21. LOSARTAN POTASSIUM [Concomitant]
     Active Substance: LOSARTAN POTASSIUM
     Indication: Hypertension
     Dosage: 75 MG, QD
     Route: 048
     Dates: start: 20140529
  22. LOSARTAN POTASSIUM [Concomitant]
     Active Substance: LOSARTAN POTASSIUM
     Indication: Cardiac failure chronic
  23. AMLODIPINE [Concomitant]
     Active Substance: AMLODIPINE BESYLATE
     Indication: Hypertension
     Dosage: 10 MG, BID
     Route: 048
  24. ISOSORBIDE [Concomitant]
     Active Substance: ISOSORBIDE
     Indication: Angina pectoris
     Dosage: 20 MG, QD
     Route: 048
  25. CRESTOR [Concomitant]
     Active Substance: ROSUVASTATIN CALCIUM
     Indication: Product used for unknown indication
  26. SAMSCA [Concomitant]
     Active Substance: TOLVAPTAN
     Indication: Product used for unknown indication
  27. FEBUXOSTAT [Concomitant]
     Active Substance: FEBUXOSTAT
     Indication: Product used for unknown indication
  28. NEXIUM [ESOMEPRAZOLE MAGNESIUM TRIHYDRATE] [Concomitant]
     Indication: Product used for unknown indication
  29. RABEPRAZOLE [Concomitant]
     Active Substance: RABEPRAZOLE
     Indication: Product used for unknown indication

REACTIONS (7)
  - Colorectal adenoma [Recovered/Resolved]
  - Cardiac failure congestive [Recovering/Resolving]
  - Cerebral haemorrhage [Recovered/Resolved with Sequelae]
  - Drug interaction [Recovered/Resolved]
  - Prothrombin time ratio increased [Recovered/Resolved]
  - Renal impairment [Recovered/Resolved]
  - Hepatic function abnormal [Recovering/Resolving]

NARRATIVE: CASE EVENT DATE: 20180227
